FAERS Safety Report 10078930 (Version 2)
Quarter: 2014Q2

REPORT INFORMATION
  Report Type: Spontaneous
  Country: DE (occurrence: None)
  Receive Date: 20140411
  Receipt Date: 20140521
  Transmission Date: 20141212
  Serious: Yes (Death, Hospitalization, Other)
  Sender: FDA-Public Use
  Company Number: 2014-19343

PATIENT
  Age: 71 Year
  Sex: Male
  Weight: 99 kg

DRUGS (13)
  1. VEGF TRAP-EYE [Suspect]
     Indication: DIABETIC RETINAL OEDEMA
     Dosage: 2 MG MILLIGRAM(S), UNK, INTRAOCULAR
     Route: 031
     Dates: start: 20120930, end: 20140317
  2. KALPRESS [Concomitant]
     Indication: HYPERTENSION
     Dosage: UNK
     Dates: start: 1999
  3. ADIRO (ACETYLSALICYLIC ACID)  ENTERIC TABLET [Concomitant]
  4. DAFIRO (AMLODIPINE BESILATE, VALSARTAN) [Concomitant]
  5. DIANBEN (METFORMIN HYDROCHLORIDE) [Concomitant]
  6. DISGREN /00002701/ (ACETYLSALICYLIC ACID) [Concomitant]
  7. HUMALOG MIX (INSULIN LISPRO , INSULIN LISPRO PROTAMINE SUSPENSION) [Concomitant]
  8. LOFTON (BUFLOMEDIL HYDROCHLORIDE) [Concomitant]
  9. SEGURIL (FUROSEMIDE) [Concomitant]
  10. ZYLORIC (ALLOPURINOL) [Concomitant]
  11. SERETIDE (FLUTICASONE PROPIONATE, SALMETEROL XINAFOATE) [Concomitant]
  12. ADOAIR (FLUTICASONE PROPIONATE, SALMETEROL XINAFOATE) [Concomitant]
  13. LUCENTIS (RANIBIZUMAB) [Concomitant]

REACTIONS (1)
  - Colitis ischaemic [None]
